FAERS Safety Report 4637036-1 (Version None)
Quarter: 2005Q2

REPORT INFORMATION
  Report Type: 
  Country: None (occurrence: None)
  Receive Date: 20050414
  Receipt Date: 20050401
  Transmission Date: 20051028
  Serious: Yes (Hospitalization)
  Sender: FDA-Public Use
  Company Number: 2005054090

PATIENT
  Sex: Female
  Weight: 46.2669 kg

DRUGS (5)
  1. DETROL LA [Suspect]
     Indication: URINARY INCONTINENCE
     Dosage: 4 MG (4 MG 1 IN 1 D) ORAL
     Route: 048
  2. ALENDRONATE SODIUM [Concomitant]
  3. PARACETAMOL [Concomitant]
  4. CALCIUM GLUCONATE [Concomitant]
  5. ONE-A-DAY (ASCORBIC ACID, CYANOCOBALAMIN, ERGOCALCIFEROL, NICOTINAMIDE [Concomitant]

REACTIONS (6)
  - DIZZINESS [None]
  - DRY MOUTH [None]
  - ENURESIS [None]
  - HYPOACUSIS [None]
  - LOSS OF CONSCIOUSNESS [None]
  - SELF-MEDICATION [None]
